FAERS Safety Report 12144607 (Version 2)
Quarter: 2017Q1

REPORT INFORMATION
  Report Type: Other
  Country: US (occurrence: US)
  Receive Date: 20160304
  Receipt Date: 20170212
  Transmission Date: 20170428
  Serious: No
  Sender: FDA-Public Use
  Company Number: US-ACORDA-ACO_119141_2015

PATIENT
  Age: 60 Year
  Sex: Female
  Weight: 63.49 kg

DRUGS (7)
  1. SYNTHROID [Concomitant]
     Active Substance: LEVOTHYROXINE SODIUM
     Indication: PRODUCT USED FOR UNKNOWN INDICATION
     Dosage: 150 ?G, QD
     Dates: start: 1985
  2. VITAMIN D [Concomitant]
     Active Substance: CHOLECALCIFEROL
     Indication: PRODUCT USED FOR UNKNOWN INDICATION
     Dosage: 5000 IU, UNK
  3. EVENING PRIMROSE OIL [Concomitant]
     Active Substance: EVENING PRIMROSE OIL
     Indication: PRODUCT USED FOR UNKNOWN INDICATION
     Dosage: UNK
  4. RELAFEN [Concomitant]
     Active Substance: NABUMETONE
     Indication: PRODUCT USED FOR UNKNOWN INDICATION
     Dosage: 750 MG, QD
     Dates: start: 1990
  5. FLONASE [Concomitant]
     Active Substance: FLUTICASONE PROPIONATE
     Indication: PRODUCT USED FOR UNKNOWN INDICATION
     Dosage: UNK
  6. AMPYRA [Suspect]
     Active Substance: DALFAMPRIDINE
     Indication: GAIT DISTURBANCE
     Dosage: 10 MG, BID
     Route: 048
     Dates: start: 20151020, end: 20151208
  7. TOPAMAX [Concomitant]
     Active Substance: TOPIRAMATE
     Indication: PRODUCT USED FOR UNKNOWN INDICATION
     Dosage: 50 MG, BID
     Dates: start: 2013

REACTIONS (19)
  - Constipation [Not Recovered/Not Resolved]
  - Dyskinesia [Recovering/Resolving]
  - Drug ineffective [Unknown]
  - Cold sweat [Recovered/Resolved]
  - Dysphagia [Recovered/Resolved]
  - Vomiting [Recovered/Resolved]
  - Insomnia [Not Recovered/Not Resolved]
  - Dysuria [Recovered/Resolved]
  - Nasal discomfort [Not Recovered/Not Resolved]
  - Abdominal distension [Not Recovered/Not Resolved]
  - Abdominal pain upper [Not Recovered/Not Resolved]
  - Throat irritation [Not Recovered/Not Resolved]
  - Drug dose omission [Unknown]
  - Dry throat [Not Recovered/Not Resolved]
  - Headache [Recovered/Resolved]
  - Peripheral coldness [Not Recovered/Not Resolved]
  - Chills [Recovered/Resolved]
  - Tremor [Recovered/Resolved]
  - Oropharyngeal pain [Not Recovered/Not Resolved]

NARRATIVE: CASE EVENT DATE: 201510
